FAERS Safety Report 4676665-6 (Version None)
Quarter: 2005Q2

REPORT INFORMATION
  Report Type: 
  Country: None (occurrence: None)
  Receive Date: 20050526
  Receipt Date: 20050520
  Transmission Date: 20051028
  Serious: Yes (Hospitalization, Other)
  Sender: FDA-Public Use
  Company Number: 2005077753

PATIENT
  Sex: Female
  Weight: 68.0396 kg

DRUGS (9)
  1. LIPITOR [Suspect]
     Indication: BLOOD CHOLESTEROL
     Dosage: 20 MG (20 MG, 1 IN 1 D)
     Dates: start: 20030101
  2. TRIAMTERENE (TRIAMTERENE) [Concomitant]
  3. FAMOTIDINE [Concomitant]
  4. PLAVIX [Concomitant]
  5. ACETYLSALICYLIC ACID SRT [Concomitant]
  6. DIGOXIN [Concomitant]
  7. LEVOTHYROXINE SODIUM [Concomitant]
  8. HUMALOG [Concomitant]
  9. TOPROL (METOPROLOL) [Concomitant]

REACTIONS (13)
  - ANAESTHETIC COMPLICATION [None]
  - BLADDER DISORDER [None]
  - CARDIAC OPERATION [None]
  - CATARACT OPERATION [None]
  - DEFAECATION URGENCY [None]
  - ERUCTATION [None]
  - FLATULENCE [None]
  - GALLBLADDER DISORDER [None]
  - KNEE ARTHROPLASTY [None]
  - MUSCLE SPASMS [None]
  - MYALGIA [None]
  - SLEEP APNOEA SYNDROME [None]
  - SWELLING [None]
